FAERS Safety Report 5001784-4 (Version None)
Quarter: 2006Q2

REPORT INFORMATION
  Report Type: 
  Country: None (occurrence: None)
  Receive Date: 20060512
  Receipt Date: 20060512
  Transmission Date: 20061013
  Serious: Yes (Other)
  Sender: FDA-Public Use
  Company Number: None

PATIENT
  Sex: Female
  Weight: 72.5755 kg

DRUGS (2)
  1. PAXIL [Suspect]
     Indication: DEPRESSION
     Dosage: 10 MG EVERY OTHER DAY PO
     Route: 048
     Dates: start: 19930601, end: 20060511
  2. PAXIL [Suspect]
     Indication: OBSESSIVE-COMPULSIVE DISORDER
     Dosage: 10 MG EVERY OTHER DAY PO
     Route: 048
     Dates: start: 19930601, end: 20060511

REACTIONS (9)
  - ANXIETY [None]
  - CHROMATOPSIA [None]
  - DRUG INTERACTION [None]
  - HALLUCINATION, VISUAL [None]
  - INFLUENZA LIKE ILLNESS [None]
  - INSOMNIA [None]
  - THINKING ABNORMAL [None]
  - TINNITUS [None]
  - VISUAL DISTURBANCE [None]
